FAERS Safety Report 4461455-X (Version None)
Quarter: 2004Q3

REPORT INFORMATION
  Report Type: 
  Country: None (occurrence: None)
  Receive Date: 20040920
  Receipt Date: 20040902
  Transmission Date: 20050211
  Serious: Yes (Hospitalization)
  Sender: FDA-Public Use
  Company Number: 200409140

PATIENT
  Age: 41 Year
  Sex: Female
  Weight: 113.3993 kg

DRUGS (39)
  1. GAMMAR-P IV (ZLB BEHRING) [Suspect]
     Indication: HYPOGAMMAGLOBULINAEMIA
     Dosage: 75 G Q1MO IV
     Route: 042
     Dates: start: 20040809, end: 20040809
  2. RITUXAN [Concomitant]
  3. HUMALOG [Concomitant]
  4. LISPRO [Concomitant]
  5. LANTUS [Concomitant]
  6. COUMADIN [Concomitant]
  7. PANGESTRYNE EC [Concomitant]
  8. REGLAN [Concomitant]
  9. ULTRAM [Concomitant]
  10. PREDNISONE [Concomitant]
  11. NYSTATIN ORAL SUSPENSION [Concomitant]
  12. ACTONEL [Concomitant]
  13. BACLOFEN [Concomitant]
  14. ZOFRAN [Concomitant]
  15. ALPRAZOLAM [Concomitant]
  16. MYCELEX [Concomitant]
  17. CALAN - SLOW RELEASE [Concomitant]
  18. ACCUPRIL [Concomitant]
  19. DIFLUCAN [Concomitant]
  20. ACIPHEX [Concomitant]
  21. ATROVENT [Concomitant]
  22. FLOVENT [Concomitant]
  23. PROVENTIL [Concomitant]
  24. RHINOCORT [Concomitant]
  25. BRETHINE [Concomitant]
  26. TENEX [Concomitant]
  27. LO/OVRAL [Concomitant]
  28. HYDROXYZINE [Concomitant]
  29. DETROL [Concomitant]
  30. NEURONTIN [Concomitant]
  31. MIACALCIN [Concomitant]
  32. NEUPOGEN [Concomitant]
  33. PROCRIT [Concomitant]
  34. VANTIN [Concomitant]
  35. CRESTOR [Concomitant]
  36. DEMADEX [Concomitant]
  37. TUMS [Concomitant]
  38. DULCOLAX [Concomitant]
  39. VITAMIN D [Concomitant]

REACTIONS (22)
  - ABDOMINAL PAIN [None]
  - BLOOD BICARBONATE DECREASED [None]
  - DIABETES MELLITUS INADEQUATE CONTROL [None]
  - DIARRHOEA [None]
  - DYSPNOEA [None]
  - DYSURIA [None]
  - HAEMOPTYSIS [None]
  - HEART RATE DECREASED [None]
  - IMPAIRED GASTRIC EMPTYING [None]
  - INFUSION RELATED REACTION [None]
  - LUNG INFILTRATION [None]
  - LUPUS PNEUMONITIS [None]
  - MELAENA [None]
  - NAUSEA [None]
  - OXYGEN SATURATION DECREASED [None]
  - PCO2 DECREASED [None]
  - PNEUMONIA ASPIRATION [None]
  - PO2 DECREASED [None]
  - PULMONARY EMBOLISM [None]
  - SPUTUM DISCOLOURED [None]
  - VOMITING [None]
  - WHEEZING [None]
